FAERS Safety Report 22897567 (Version 2)
Quarter: 2024Q4

REPORT INFORMATION
  Report Type: Spontaneous
  Country: US (occurrence: US)
  Receive Date: 20230902
  Receipt Date: 20241113
  Transmission Date: 20250115
  Serious: Yes (Other)
  Sender: AMNEAL
  Company Number: US-AMNEAL PHARMACEUTICALS-2023-AMRX-03041

PATIENT
  Sex: Male

DRUGS (1)
  1. RYTARY [Suspect]
     Active Substance: CARBIDOPA\LEVODOPA
     Indication: Product used for unknown indication
     Dosage: UNK
     Route: 048

REACTIONS (2)
  - Liver injury [Unknown]
  - Blood pressure abnormal [Unknown]
